FAERS Safety Report 21936330 (Version 1)
Quarter: 2023Q1

REPORT INFORMATION
  Report Type: Spontaneous
  Country: None (occurrence: US)
  Receive Date: 20230201
  Receipt Date: 20230201
  Transmission Date: 20230417
  Serious: No
  Sender: FDA-Public Use
  Company Number: US-SERB S.A.S.-2137343

PATIENT
  Age: 30 Year
  Sex: Female

DRUGS (2)
  1. CYANOKIT [Suspect]
     Active Substance: HYDROXOCOBALAMIN
     Indication: Respiratory fume inhalation disorder
     Route: 065
  2. SULFADIAZINE [Suspect]
     Active Substance: SULFADIAZINE
     Route: 065

REACTIONS (1)
  - Methaemoglobinaemia [Unknown]
